FAERS Safety Report 4362914-0 (Version None)
Quarter: 2004Q2

REPORT INFORMATION
  Report Type: 
  Country: None (occurrence: None)
  Receive Date: 20040517
  Receipt Date: 20040322
  Transmission Date: 20050107
  Serious: No
  Sender: FDA-Public Use
  Company Number: S04-USA-01839-01

PATIENT
  Age: 81 Year
  Sex: Male

DRUGS (4)
  1. NAMENDA [Suspect]
     Indication: VASCULAR DEMENTIA
     Dosage: 10 MG BID PO
     Route: 048
     Dates: start: 20040301
  2. ATACAND [Concomitant]
  3. HYTRIN [Concomitant]
  4. ATENOLOL [Concomitant]

REACTIONS (3)
  - AGGRESSION [None]
  - FALL [None]
  - NERVOUSNESS [None]
